APPROVED DRUG PRODUCT: ATMEKSI
Active Ingredient: METHOCARBAMOL
Strength: 750MG/5ML
Dosage Form/Route: SUSPENSION;ORAL
Application: N219843 | Product #001
Applicant: ROSEMONT PHARMACEUTICALS INC
Approved: Jul 30, 2025 | RLD: Yes | RS: Yes | Type: RX

PATENTS:
Patent 12390439 | Expires: Oct 9, 2044